FAERS Safety Report 24725267 (Version 2)
Quarter: 2025Q1

REPORT INFORMATION
  Report Type: Report from Study
  Country: US (occurrence: US)
  Receive Date: 20241212
  Receipt Date: 20250209
  Transmission Date: 20250409
  Serious: Yes (Other)
  Sender: JAZZ
  Company Number: US-JAZZ PHARMACEUTICALS-2024-US-023336

PATIENT
  Age: 46 Year
  Sex: Female

DRUGS (12)
  1. XYWAV [Suspect]
     Active Substance: CALCIUM OXYBATE\MAGNESIUM OXYBATE\POTASSIUM OXYBATE\SODIUM OXYBATE
     Indication: Narcolepsy
  2. XYWAV [Suspect]
     Active Substance: CALCIUM OXYBATE\MAGNESIUM OXYBATE\POTASSIUM OXYBATE\SODIUM OXYBATE
     Indication: Cataplexy
  3. XYWAV [Suspect]
     Active Substance: CALCIUM OXYBATE\MAGNESIUM OXYBATE\POTASSIUM OXYBATE\SODIUM OXYBATE
     Indication: Somnolence
  4. VITAMINS [Concomitant]
     Active Substance: VITAMINS
     Indication: Product used for unknown indication
     Dates: start: 20230724
  5. COUGH [PLATYCODON GRANDIFLORUS] [Concomitant]
     Indication: Product used for unknown indication
     Dates: start: 20230723
  6. DELSYM [Concomitant]
     Active Substance: DEXTROMETHORPHAN
     Indication: Product used for unknown indication
     Dates: start: 20230807
  7. VITAMIN B COMPLEX [Concomitant]
     Active Substance: CYANOCOBALAMIN\DEXPANTHENOL\NIACINAMIDE\PYRIDOXINE HYDROCHLORIDE\RIBOFLAVIN 5^-PHOSPHATE SODIUM\THIA
     Indication: Product used for unknown indication
     Dates: start: 20230723
  8. VITAMIN D3 [Concomitant]
     Active Substance: CHOLECALCIFEROL
     Indication: Product used for unknown indication
     Dates: start: 20230723
  9. AFRIN NASAL DECONGESTANT [Concomitant]
     Indication: Product used for unknown indication
     Dates: start: 20230723
  10. SUNOSI [Concomitant]
     Active Substance: SOLRIAMFETOL
     Dates: start: 20240204
  11. DICLOFENAC SOD.CO [Concomitant]
     Dates: start: 20240204
  12. METHOCARBAMOL [Concomitant]
     Active Substance: METHOCARBAMOL
     Dates: start: 20241124

REACTIONS (2)
  - Surgery [Recovering/Resolving]
  - Back disorder [Unknown]

NARRATIVE: CASE EVENT DATE: 20241101
